FAERS Safety Report 8509746-7 (Version None)
Quarter: 2012Q3

REPORT INFORMATION
  Report Type: 
  Country: None (occurrence: None)
  Receive Date: 20120713
  Receipt Date: 20120703
  Transmission Date: 20120928
  Serious: No
  Sender: FDA-Public Use
  Company Number: US-ASTRAZENECA-2012SE45620

PATIENT
  Age: 60 Year
  Sex: Male

DRUGS (2)
  1. ATENOLOL [Suspect]
     Route: 065
  2. LISINOPRIL [Suspect]
     Route: 048

REACTIONS (1)
  - DRUG HYPERSENSITIVITY [None]
